FAERS Safety Report 11132598 (Version 1)
Quarter: 2015Q2

REPORT INFORMATION
  Report Type: Spontaneous
  Country: AT (occurrence: AT)
  Receive Date: 20150522
  Receipt Date: 20150522
  Transmission Date: 20150821
  Serious: Yes (Other)
  Sender: FDA-Public Use
  Company Number: AT-BAXTER-2015BAX026047

PATIENT
  Age: 77 Year
  Sex: Female

DRUGS (4)
  1. FEIBA [Suspect]
     Active Substance: ANTI-INHIBITOR COAGULANT COMPLEX
     Indication: COAGULATION FACTOR DEFICIENCY
     Dosage: 21000 U TOTALED
     Route: 065
  2. ENDOXAN ^BAXTER^ 50 MG - DRAGEES [Suspect]
     Active Substance: CYCLOPHOSPHAMIDE
     Indication: IMMUNOSUPPRESSION
     Route: 048
  3. NOVOSEVEN [Suspect]
     Active Substance: COAGULATION FACTOR VIIA RECOMBINANT HUMAN
     Indication: COAGULATION FACTOR DEFICIENCY
     Dosage: TOTALED
     Route: 065
  4. FAKTOR VII ^BAXTER^ 600 I.E. PULVER UND L?SUNGSMITTEL ZUR HERSTELLUNG [Suspect]
     Active Substance: COAGULATION FACTOR VII HUMAN
     Indication: COAGULATION FACTOR DEFICIENCY
     Dosage: 4200 U TOTALED
     Route: 065

REACTIONS (2)
  - Anaphylactic reaction [Recovered/Resolved]
  - Disseminated intravascular coagulation [Recovered/Resolved]
